FAERS Safety Report 6891774-9 (Version None)
Quarter: 2010Q3

REPORT INFORMATION
  Report Type: 
  Country: None (occurrence: None)
  Receive Date: 20100731
  Receipt Date: 20071012
  Transmission Date: 20110219
  Serious: No
  Sender: FDA-Public Use
  Company Number: US-PFIZER INC-2007086910

PATIENT
  Sex: Male
  Weight: 81.818 kg

DRUGS (7)
  1. NORVASC [Suspect]
     Indication: HYPERTENSION
  2. AMLODIPINE [Suspect]
     Indication: HYPERTENSION
     Dates: start: 20071007
  3. ASTELIN [Concomitant]
     Indication: HYPERSENSITIVITY
  4. NASONEX [Concomitant]
     Indication: HYPERSENSITIVITY
  5. CITRUCEL [Concomitant]
  6. CENTRUM SILVER [Concomitant]
  7. ASCORBIC ACID [Concomitant]

REACTIONS (1)
  - CONSTIPATION [None]
